FAERS Safety Report 4294096-8 (Version None)
Quarter: 2004Q1

REPORT INFORMATION
  Report Type: 
  Country: None (occurrence: None)
  Receive Date: 20040212
  Receipt Date: 20040212
  Transmission Date: 20041129
  Serious: Yes (Other)
  Sender: FDA-Public Use
  Company Number: None

PATIENT
  Age: 48 Year
  Sex: Female
  Weight: 59.8748 kg

DRUGS (1)
  1. ZICAM [Suspect]
     Indication: NASOPHARYNGITIS
     Dosage: 1 SPRAY EVERY 4 HO NASAL
     Route: 045
     Dates: start: 20040124, end: 20040126

REACTIONS (2)
  - ANOSMIA [None]
  - BURNING SENSATION [None]
